FAERS Safety Report 5619124-6 (Version None)
Quarter: 2008Q1

REPORT INFORMATION
  Report Type: 
  Country: None (occurrence: None)
  Receive Date: 20080205
  Receipt Date: 20080129
  Transmission Date: 20080703
  Serious: Yes (Life-Threatening, Hospitalization)
  Sender: FDA-Public Use
  Company Number: SP01754

PATIENT
  Age: 52 Year
  Sex: Male
  Weight: 124.7392 kg

DRUGS (2)
  1. OSMOPREP [Suspect]
     Indication: COLONOSCOPY
     Dosage: 4 TABLETS, ORAL
     Route: 048
     Dates: start: 20070812, end: 20070812
  2. BENICAR [Concomitant]

REACTIONS (2)
  - ANAPHYLACTIC SHOCK [None]
  - FALL [None]
